FAERS Safety Report 6066172-0 (Version None)
Quarter: 2009Q1

REPORT INFORMATION
  Report Type: 
  Country: None (occurrence: None)
  Receive Date: 20090205
  Receipt Date: 20090126
  Transmission Date: 20090719
  Serious: Yes (Hospitalization)
  Sender: FDA-Public Use
  Company Number: PHHY2009SE02604

PATIENT
  Sex: Female

DRUGS (11)
  1. DIOVAN [Suspect]
     Dosage: UNK
     Dates: end: 20081030
  2. ZOLPIDEM TARTRATE [Concomitant]
  3. ATARAX [Concomitant]
  4. OMEPRAZOL ^ACYFABRIK^ [Concomitant]
  5. CITALOPRAM HYDROBROMIDE [Concomitant]
  6. INOLAXOL [Concomitant]
  7. FOLACIN [Concomitant]
  8. VI-SIBLIN [Concomitant]
  9. BEHEPAN [Concomitant]
  10. KALEORID [Concomitant]
  11. DIMETICONE [Concomitant]

REACTIONS (2)
  - ABDOMINAL PAIN [None]
  - HYPONATRAEMIA [None]
